FAERS Safety Report 16053990 (Version 8)
Quarter: 2020Q1

REPORT INFORMATION
  Report Type: Spontaneous
  Country: US (occurrence: US)
  Receive Date: 20190308
  Receipt Date: 20200327
  Transmission Date: 20200409
  Serious: No
  Sender: FDA-Public Use
  Company Number: US-ACTELION-A-US2019-186550

PATIENT
  Age: 78 Year
  Sex: Female
  Weight: 54.42 kg

DRUGS (5)
  1. OPSUMIT [Suspect]
     Active Substance: MACITENTAN
     Indication: PULMONARY HYPERTENSION
     Dosage: 10 MG, QD
     Route: 048
  2. REMODULIN [Suspect]
     Active Substance: TREPROSTINIL
     Indication: PRODUCT USED FOR UNKNOWN INDICATION
     Dosage: UNK
     Route: 058
     Dates: start: 20190208
  3. SILDENAFIL CITRATE. [Concomitant]
     Active Substance: SILDENAFIL CITRATE
  4. REMODULIN [Suspect]
     Active Substance: TREPROSTINIL
     Dosage: UNK
     Route: 058
  5. ELIQUIS [Concomitant]
     Active Substance: APIXABAN

REACTIONS (15)
  - Scleroderma [Not Recovered/Not Resolved]
  - Infusion site pain [Unknown]
  - Headache [Unknown]
  - Syncope [Unknown]
  - Infusion site warmth [Unknown]
  - Skin ulcer [Not Recovered/Not Resolved]
  - Device leakage [Unknown]
  - Infusion site erythema [Unknown]
  - Infusion site swelling [Unknown]
  - Diarrhoea [Unknown]
  - Infusion site pruritus [Unknown]
  - Infusion site discharge [Unknown]
  - Infusion site bruising [Unknown]
  - Infusion site haemorrhage [Unknown]
  - Catheter placement [Unknown]

NARRATIVE: CASE EVENT DATE: 201902
